FAERS Safety Report 8522582-0 (Version None)
Quarter: 2012Q3

REPORT INFORMATION
  Report Type: 
  Country: None (occurrence: None)
  Receive Date: 20120719
  Receipt Date: 20120711
  Transmission Date: 20120928
  Serious: Yes (Other)
  Sender: FDA-Public Use
  Company Number: US-B.I. PHARMACEUTICALS,INC./RIDGEFIELD-2012-BP-15960YA

PATIENT
  Age: 61 Year
  Sex: Male

DRUGS (2)
  1. ARTHROTEC [Concomitant]
     Indication: OSTEOARTHRITIS
  2. TAMSULOSIN HCL [Suspect]
     Indication: BENIGN PROSTATIC HYPERPLASIA
     Route: 048

REACTIONS (1)
  - FLOPPY IRIS SYNDROME [None]
